FAERS Safety Report 10819856 (Version 2)
Quarter: 2015Q3

REPORT INFORMATION
  Report Type: Report from Study
  Country: US (occurrence: US)
  Receive Date: 20150218
  Receipt Date: 20150826
  Transmission Date: 20151125
  Serious: Yes (Death, Hospitalization, Other)
  Sender: FDA-Public Use
  Company Number: US-GILEAD-2015-0137643

PATIENT
  Age: 60 Year
  Sex: Female

DRUGS (12)
  1. AMBRISENTAN [Suspect]
     Active Substance: AMBRISENTAN
     Indication: SCLERODERMA
  2. TRAMADOL                           /00599202/ [Concomitant]
     Active Substance: TRAMADOL
  3. SILDENAFIL. [Concomitant]
     Active Substance: SILDENAFIL
  4. FOLIC ACID. [Concomitant]
     Active Substance: FOLIC ACID
  5. PANTOPRAZOLE [Concomitant]
     Active Substance: PANTOPRAZOLE SODIUM
  6. AMBRISENTAN [Suspect]
     Active Substance: AMBRISENTAN
     Indication: PULMONARY HYPERTENSION
     Dosage: 10 MG, QD
     Route: 065
     Dates: start: 20141012, end: 20150204
  7. MYCOPHENOLATE [Concomitant]
     Active Substance: MYCOPHENOLIC ACID
  8. ATOVAQUONE. [Concomitant]
     Active Substance: ATOVAQUONE
  9. COLACE [Concomitant]
     Active Substance: DOCUSATE SODIUM
  10. LEVOTHYROXINE. [Concomitant]
     Active Substance: LEVOTHYROXINE
  11. CALCIUM [Concomitant]
     Active Substance: CALCIUM
  12. ENALAPRIL [Concomitant]
     Active Substance: ENALAPRIL

REACTIONS (4)
  - Respiratory failure [Fatal]
  - Pulmonary arterial hypertension [Not Recovered/Not Resolved]
  - Interstitial lung disease [Fatal]
  - Scleroderma [Not Recovered/Not Resolved]
